FAERS Safety Report 9161954 (Version 1)
Quarter: 2013Q1

REPORT INFORMATION
  Report Type: Spontaneous
  Country: JP (occurrence: None)
  Receive Date: 20130225
  Receipt Date: 20130225
  Transmission Date: 20140127
  Serious: Yes (Hospitalization)
  Sender: FDA-Public Use
  Company Number: 145555

PATIENT
  Age: 23 Year
  Sex: Female

DRUGS (3)
  1. BLEOMYCIN [Suspect]
     Indication: OVARIAN GERM CELL ENDODERMAL SINUS TUMOUR
     Dosage: DAYS 2, 9, AND 16
  2. BLEOMYCIN [Suspect]
     Indication: OVARIAN GERM CELL ENDODERMAL SINUS TUMOUR
     Dosage: DAYS 2, 9, AND 16
  3. CISPLATIN [Suspect]
     Dosage: 20MG/

REACTIONS (6)
  - Tumour lysis syndrome [None]
  - Pulmonary fibrosis [None]
  - Cardiac failure congestive [None]
  - Pneumonitis [None]
  - Hydronephrosis [None]
  - Renal failure acute [None]
